FAERS Safety Report 7340617-8 (Version None)
Quarter: 2011Q1

REPORT INFORMATION
  Report Type: 
  Country: None (occurrence: None)
  Receive Date: 20110301
  Receipt Date: 20110217
  Transmission Date: 20110831
  Serious: No
  Sender: FDA-Public Use
  Company Number: 027734

PATIENT
  Sex: Male
  Weight: 160 kg

DRUGS (1)
  1. KEPPRA [Suspect]
     Indication: CONVULSION
     Dosage: (500 MG AM-750MG PM ORAL)
     Route: 048
     Dates: start: 20101201

REACTIONS (3)
  - DIZZINESS POSTURAL [None]
  - SOMNOLENCE [None]
  - CONVULSION [None]
